FAERS Safety Report 17762564 (Version 1)
Quarter: 2020Q2

REPORT INFORMATION
  Report Type: Report from Study
  Country: NL (occurrence: NL)
  Receive Date: 20200508
  Receipt Date: 20200508
  Transmission Date: 20200714
  Serious: Yes (Hospitalization)
  Sender: FDA-Public Use
  Company Number: NL-MYLANLABS-2020M1045459

PATIENT
  Age: 35 Year
  Sex: Female

DRUGS (2)
  1. AZATHIOPRINE. [Suspect]
     Active Substance: AZATHIOPRINE
     Indication: COLITIS ULCERATIVE
     Dosage: 50 MILLIGRAM, BID (50MG, 2X/D)
     Route: 048
     Dates: start: 20110901, end: 20111001
  2. PREDNISON [Concomitant]
     Active Substance: PREDNISONE
     Dosage: MG, VOLGENS SCHEMA
     Route: 042
     Dates: start: 20111001, end: 20111001

REACTIONS (1)
  - Cytomegalovirus colitis [Recovered/Resolved]

NARRATIVE: CASE EVENT DATE: 20111001
